FAERS Safety Report 19199399 (Version 2)
Quarter: 2021Q2

REPORT INFORMATION
  Report Type: Report from Study
  Country: HU (occurrence: HU)
  Receive Date: 20210430
  Receipt Date: 20210506
  Transmission Date: 20210717
  Serious: Yes (Life-Threatening, Hospitalization, Other)
  Sender: FDA-Public Use
  Company Number: NVSC2021HU046169

PATIENT
  Age: 49 Year
  Sex: Male
  Weight: 85 kg

DRUGS (3)
  1. ADVAGRAF [Concomitant]
     Active Substance: TACROLIMUS
     Indication: RENAL TRANSPLANT
     Dosage: 5 MG, QD
     Route: 048
  2. CERTICAN [Suspect]
     Active Substance: EVEROLIMUS
     Indication: BASAL CELL CARCINOMA
     Dosage: 0.75 MG, BID
     Route: 048
     Dates: start: 2020
  3. CERTICAN [Suspect]
     Active Substance: EVEROLIMUS
     Indication: RENAL TRANSPLANT
     Dosage: 0.75 MG, BID
     Route: 048
     Dates: start: 2019

REACTIONS (3)
  - Basal cell carcinoma [Unknown]
  - Acute myocardial infarction [Recovered/Resolved with Sequelae]
  - Product use in unapproved indication [Unknown]

NARRATIVE: CASE EVENT DATE: 2019
